FAERS Safety Report 22256601 (Version 4)
Quarter: 2024Q2

REPORT INFORMATION
  Report Type: Report from Study
  Country: NZ (occurrence: NZ)
  Receive Date: 20230426
  Receipt Date: 20240603
  Transmission Date: 20240716
  Serious: Yes (Death, Other)
  Sender: FDA-Public Use
  Company Number: NZ-TAKEDA-2023TUS041607

PATIENT

DRUGS (2)
  1. IXAZOMIB [Suspect]
     Active Substance: IXAZOMIB
     Indication: Product used for unknown indication
     Dosage: 2.3 MILLIGRAM
     Route: 065
  2. IXAZOMIB [Suspect]
     Active Substance: IXAZOMIB
     Dosage: 3 MILLIGRAM
     Route: 065

REACTIONS (1)
  - Disease progression [Fatal]
